FAERS Safety Report 10419426 (Version 2)
Quarter: 2014Q4

REPORT INFORMATION
  Report Type: Report from Study
  Country: CA (occurrence: CA)
  Receive Date: 20140829
  Receipt Date: 20141029
  Transmission Date: 20150528
  Serious: No
  Sender: FDA-Public Use
  Company Number: PHHY2014CA108891

PATIENT
  Sex: Female

DRUGS (3)
  1. ACLASTA [Suspect]
     Active Substance: ZOLEDRONIC ACID
     Indication: OSTEOPOROSIS
     Dosage: UNK UKN, UNK
     Route: 042
     Dates: start: 20140331
  2. ACLASTA [Suspect]
     Active Substance: ZOLEDRONIC ACID
     Indication: OSTEITIS DEFORMANS
  3. ACLASTA [Suspect]
     Active Substance: ZOLEDRONIC ACID
     Indication: PAIN

REACTIONS (4)
  - Pain [Not Recovered/Not Resolved]
  - Condition aggravated [Not Recovered/Not Resolved]
  - Arthropathy [Not Recovered/Not Resolved]
  - Abasia [Not Recovered/Not Resolved]
